FAERS Safety Report 4775284-0 (Version None)
Quarter: 2005Q3

REPORT INFORMATION
  Report Type: 
  Country: None (occurrence: None)
  Receive Date: 20050921
  Receipt Date: 20050921
  Transmission Date: 20060218
  Serious: Yes (Hospitalization)
  Sender: FDA-Public Use
  Company Number: None

PATIENT
  Sex: Male
  Weight: 82.1011 kg

DRUGS (3)
  1. BEVACIZUMAB [Suspect]
     Indication: TRANSITIONAL CELL CARCINOMA
     Dosage: 15MG.KG EVERY 3 WEEKS IV
     Route: 042
     Dates: start: 20050421, end: 20050901
  2. PACLITAXEL [Suspect]
     Indication: TRANSITIONAL CELL CARCINOMA
     Dosage: 175MG/M^2  6AUC EVERY 3 WEEKS IV
     Route: 042
     Dates: start: 20050421, end: 20050901
  3. CARBOPLATIN [Suspect]
     Indication: TRANSITIONAL CELL CARCINOMA
     Dosage: 175MG/M^2 6AUC EVERY 3 WEEKS IV
     Route: 042
     Dates: start: 20050421, end: 20050901

REACTIONS (5)
  - FEBRILE NEUTROPENIA [None]
  - PNEUMONIA [None]
  - PSEUDOMONAS INFECTION [None]
  - SPUTUM CULTURE POSITIVE [None]
  - WHITE BLOOD CELL COUNT DECREASED [None]
